FAERS Safety Report 6259262-0 (Version None)
Quarter: 2009Q3

REPORT INFORMATION
  Report Type: 
  Country: None (occurrence: None)
  Receive Date: 20090702
  Receipt Date: 20090624
  Transmission Date: 20100115
  Serious: Yes (Hospitalization, Other)
  Sender: FDA-Public Use
  Company Number: TPA2008A02154

PATIENT
  Age: 66 Year
  Sex: Male
  Weight: 96.6162 kg

DRUGS (4)
  1. ACTOPLUS MET [Suspect]
     Indication: TYPE 2 DIABETES MELLITUS
     Dosage: 15/850 MG, 2 IN 1 D, PER ORAL, 15/500 MG, 1 IN1 D, PER ORAL,
     Route: 048
     Dates: start: 20081224, end: 20081228
  2. ACTOPLUS MET [Suspect]
     Indication: TYPE 2 DIABETES MELLITUS
     Dosage: 15/850 MG, 2 IN 1 D, PER ORAL, 15/500 MG, 1 IN1 D, PER ORAL,
     Route: 048
     Dates: start: 20081228, end: 20090624
  3. DIABETIC VITAMINS (VITAMINS) [Concomitant]
  4. ASPIRIN [Concomitant]

REACTIONS (3)
  - DIZZINESS [None]
  - FEELING ABNORMAL [None]
  - HYPOGLYCAEMIA [None]
